FAERS Safety Report 10750656 (Version 5)
Quarter: 2015Q1

REPORT INFORMATION
  Report Type: Spontaneous
  Country: PL (occurrence: PL)
  Receive Date: 20150130
  Receipt Date: 20150326
  Transmission Date: 20150721
  Serious: Yes (Life-Threatening, Other)
  Sender: FDA-Public Use
  Company Number: PL-ROCHE-1526290

PATIENT
  Age: 79 Year
  Sex: Male
  Weight: 70 kg

DRUGS (10)
  1. GAZYVARO [Suspect]
     Active Substance: OBINUTUZUMAB
     Route: 065
     Dates: start: 20150122
  2. ZOFRAN [Concomitant]
     Active Substance: ONDANSETRON HYDROCHLORIDE
     Indication: VOMITING
     Dosage: 2X8
     Route: 042
     Dates: start: 20150121, end: 20150122
  3. GAZYVARO [Suspect]
     Active Substance: OBINUTUZUMAB
     Route: 065
     Dates: start: 20150210
  4. PERFALGAN [Concomitant]
     Active Substance: ACETAMINOPHEN
     Indication: PREMEDICATION
     Route: 042
     Dates: start: 20150121, end: 20150122
  5. CHLORAMBUCIL [Concomitant]
     Active Substance: CHLORAMBUCIL
     Indication: CHRONIC LYMPHOCYTIC LEUKAEMIA
     Route: 048
     Dates: start: 20150121, end: 20150121
  6. DEXAVEN [Concomitant]
     Active Substance: DEXAMETHASONE
     Indication: PREMEDICATION
     Route: 042
     Dates: start: 20150121, end: 20150122
  7. ZYRTEC [Concomitant]
     Active Substance: CETIRIZINE HYDROCHLORIDE
     Indication: PREMEDICATION
     Route: 048
     Dates: start: 20150121, end: 20150122
  8. MILURIT [Concomitant]
     Active Substance: ALLOPURINOL
     Indication: PROPHYLAXIS
     Dosage: 2X300MG
     Route: 065
     Dates: start: 20150121
  9. GAZYVARO [Suspect]
     Active Substance: OBINUTUZUMAB
     Indication: CHRONIC LYMPHOCYTIC LEUKAEMIA
     Dosage: DAY 1 100 MG; DAY 2 900 MG
     Route: 042
     Dates: start: 20150121, end: 20150122
  10. TRAMAL [Concomitant]
     Active Substance: TRAMADOL
     Indication: PAIN
     Dosage: 3X50MG
     Route: 048
     Dates: start: 20150112

REACTIONS (12)
  - Lower gastrointestinal haemorrhage [Recovered/Resolved]
  - Pulmonary embolism [Unknown]
  - C-reactive protein increased [Unknown]
  - Thrombocytopenia [Recovering/Resolving]
  - Lung neoplasm [Recovered/Resolved]
  - Dyspnoea [Unknown]
  - Procalcitonin increased [Unknown]
  - Haemoptysis [Unknown]
  - Thrombocytopenia [Unknown]
  - Epistaxis [Recovered/Resolved]
  - Pulmonary alveolar haemorrhage [Unknown]
  - White blood cell count decreased [Unknown]

NARRATIVE: CASE EVENT DATE: 20150122
